FAERS Safety Report 20496873 (Version 2)
Quarter: 2022Q1

REPORT INFORMATION
  Report Type: Spontaneous
  Country: US (occurrence: US)
  Receive Date: 20220221
  Receipt Date: 20220311
  Transmission Date: 20220423
  Serious: Yes (Hospitalization, Other)
  Sender: FDA-Public Use
  Company Number: US-ORGANON-1501USA004779

PATIENT
  Sex: Female
  Weight: 72.6 kg

DRUGS (10)
  1. FOSAMAX [Suspect]
     Active Substance: ALENDRONATE SODIUM
     Indication: Osteopenia
     Dosage: UNK, UNKNOWN
     Route: 048
     Dates: end: 20140128
  2. FOSAMAX [Suspect]
     Active Substance: ALENDRONATE SODIUM
     Indication: Osteoporosis
  3. FOSAMAX PLUS D [Suspect]
     Active Substance: ALENDRONATE SODIUM\CHOLECALCIFEROL
     Indication: Osteopenia
     Dosage: 70 MG/2,800, UNK
     Route: 048
     Dates: start: 20050627, end: 20130507
  4. FOSAMAX PLUS D [Suspect]
     Active Substance: ALENDRONATE SODIUM\CHOLECALCIFEROL
     Indication: Osteoporosis
  5. VITAMINS NOS [Concomitant]
     Active Substance: VITAMINS
     Indication: Product used for unknown indication
     Dosage: UNK, UNKNOWN
     Route: 065
     Dates: start: 1995
  6. CALCIUM [Concomitant]
     Active Substance: CALCIUM
     Indication: Product used for unknown indication
     Dosage: UNK, UNKNOWN
     Route: 065
     Dates: start: 1995
  7. CALCIUM CARBONATE [Concomitant]
     Active Substance: CALCIUM CARBONATE
     Dosage: UNK
     Route: 048
     Dates: start: 19990101
  8. FLUTICASONE PROPIONATE [Concomitant]
     Active Substance: FLUTICASONE PROPIONATE
     Dosage: USE 2 SPRAYS IN EACH NOSTRIL ONCE DAILY
     Route: 045
     Dates: start: 20111208
  9. VITAMINS [Concomitant]
     Active Substance: VITAMINS
     Dosage: UNK
     Route: 048
     Dates: start: 19990101
  10. VITAMIN D2 [Concomitant]
     Active Substance: ERGOCALCIFEROL
     Dosage: PATIENT-REPORTED MEDICATION, TAKE BY MOUTH
     Route: 048

REACTIONS (22)
  - Fall [Unknown]
  - Fall [Unknown]
  - Foot fracture [Unknown]
  - Wrist fracture [Unknown]
  - Fall [Unknown]
  - Femur fracture [Recovered/Resolved]
  - Hand fracture [Unknown]
  - Foot fracture [Unknown]
  - Low turnover osteopathy [Unknown]
  - Road traffic accident [Unknown]
  - Hand fracture [Unknown]
  - Post procedural infection [Unknown]
  - Elbow operation [Unknown]
  - Anxiety [Unknown]
  - Laryngitis [Unknown]
  - Cough [Unknown]
  - Paraesthesia [Unknown]
  - Electrocardiogram abnormal [Unknown]
  - Fatigue [Unknown]
  - Pain in extremity [Unknown]
  - Hypoaesthesia [Recovered/Resolved]
  - Gastrooesophageal reflux disease [Recovering/Resolving]

NARRATIVE: CASE EVENT DATE: 20010201
